FAERS Safety Report 9247931 (Version 1)
Quarter: 2013Q1

REPORT INFORMATION
  Report Type: Spontaneous
  Country: US (occurrence: None)
  Receive Date: 20130305
  Receipt Date: 20130305
  Transmission Date: 20140127
  Serious: Yes (Hospitalization)
  Sender: FDA-Public Use
  Company Number: 163-21880-12092243

PATIENT
  Age: 71 Year
  Sex: Male

DRUGS (4)
  1. REVLIMID (LENALIDOMIDE) (CAPSULES) [Suspect]
     Indication: PLASMA CELL MYELOMA
     Dosage: 25 MG, 21 IN 21 D
     Route: 048
     Dates: start: 20120828
  2. ALBUTEROL SULFATE (SALBUTAMOL SULFATE) [Suspect]
  3. ULTRAM (TRAMADOL HYDROCHLORIDE) [Suspect]
  4. ZANTAC (RANITIDINE HYDROCHLORIDE) [Suspect]

REACTIONS (1)
  - Chest pain [None]
